FAERS Safety Report 25172598 (Version 1)
Quarter: 2025Q2

REPORT INFORMATION
  Report Type: Spontaneous
  Country: US (occurrence: US)
  Receive Date: 20250408
  Receipt Date: 20250408
  Transmission Date: 20250716
  Serious: No
  Sender: ROCHE
  Company Number: US-ROCHE-10000249288

PATIENT
  Sex: Female

DRUGS (1)
  1. XOLAIR [Suspect]
     Active Substance: OMALIZUMAB
     Indication: Asthma
     Dosage: ONGOING, STRENGTH:150MG/ML, 75MG/0.5ML, TOTAL DOSE:225 MG
     Route: 058
     Dates: start: 202408

REACTIONS (2)
  - Drug ineffective [Unknown]
  - No adverse event [Unknown]
